FAERS Safety Report 19585975 (Version 2)
Quarter: 2021Q3

REPORT INFORMATION
  Report Type: Spontaneous
  Country: GR (occurrence: GR)
  Receive Date: 20210720
  Receipt Date: 20210729
  Transmission Date: 20211014
  Serious: Yes (Death, Hospitalization)
  Sender: FDA-Public Use
  Company Number: GR-PFIZER INC-2021842656

PATIENT
  Age: 48 Year
  Sex: Male
  Weight: 92 kg

DRUGS (16)
  1. PANADOL [Suspect]
     Active Substance: ACETAMINOPHEN
     Indication: PAIN
     Dosage: 1000 MG
  2. DEXAMETHASONE. [Suspect]
     Active Substance: DEXAMETHASONE
     Dosage: 2 MG
  3. IPILIMUMAB [Suspect]
     Active Substance: IPILIMUMAB
     Dosage: 5 MG
     Route: 065
     Dates: start: 20200605
  4. IPILIMUMAB [Suspect]
     Active Substance: IPILIMUMAB
     Dosage: 5 MG
     Dates: start: 20200701
  5. DEXAMETHASONE. [Suspect]
     Active Substance: DEXAMETHASONE
     Dosage: 5 MG
  6. NIVOLUMAB [Suspect]
     Active Substance: NIVOLUMAB
     Dosage: 10 MG
     Dates: start: 20200514
  7. NIVOLUMAB [Suspect]
     Active Substance: NIVOLUMAB
     Dosage: 10 MG
     Dates: start: 20200605
  8. NIVOLUMAB [Suspect]
     Active Substance: NIVOLUMAB
     Dosage: 10 MG
     Dates: start: 20200701
  9. LYRICA [Suspect]
     Active Substance: PREGABALIN
     Indication: PAIN
     Dosage: 150 MG, 1X/DAY
     Dates: start: 202004
  10. ZOLEDRONIC ACID [Suspect]
     Active Substance: ZOLEDRONIC ACID
     Dosage: UNK
     Dates: start: 20200605
  11. DUROGESIC [Suspect]
     Active Substance: FENTANYL
     Indication: PAIN
     Dosage: UNK
     Route: 062
     Dates: start: 202005
  12. IPILIMUMAB [Suspect]
     Active Substance: IPILIMUMAB
     Dosage: 5 MG
     Dates: start: 20200514
  13. DEXAMETHASONE. [Suspect]
     Active Substance: DEXAMETHASONE
     Dosage: 7 MG
  14. ZOLEDRONIC ACID [Suspect]
     Active Substance: ZOLEDRONIC ACID
     Dosage: UNK
     Dates: start: 20200701
  15. DEXAMETHASONE. [Suspect]
     Active Substance: DEXAMETHASONE
     Dosage: 2.5 MG
  16. TRAMAL [Suspect]
     Active Substance: TRAMADOL
     Indication: PAIN
     Dosage: 100 MG, 1X/DAY
     Dates: start: 202004

REACTIONS (4)
  - Death [Fatal]
  - Drug ineffective [Fatal]
  - Pneumonitis [Fatal]
  - Product adhesion issue [Fatal]

NARRATIVE: CASE EVENT DATE: 20200812
